FAERS Safety Report 17114143 (Version 1)
Quarter: 2019Q4

REPORT INFORMATION
  Report Type: Spontaneous
  Country: ES (occurrence: ES)
  Receive Date: 20191205
  Receipt Date: 20191205
  Transmission Date: 20200122
  Serious: Yes (Other)
  Sender: FDA-Public Use
  Company Number: ES-SUN PHARMACEUTICAL INDUSTRIES LTD-2019RR-229770

PATIENT
  Age: 60 Year
  Sex: Male
  Weight: 67 kg

DRUGS (3)
  1. CIANOCOBALAMINA 1 MG INYECTABLE 2 ML 5 AMPOLLAS (PRODUCT) [Concomitant]
     Indication: GASTRECTOMY
     Dosage: 1 MILLIGRAM, EVERY 28 DAYS
     Route: 030
     Dates: start: 20120922
  2. VALSARTAN. [Suspect]
     Active Substance: VALSARTAN
     Indication: HYPERTENSION
     Dosage: 80 MILLIGRAM, DAILY
     Route: 048
     Dates: start: 20140105, end: 20190620
  3. FERROGLICINA SULFATO (1549SU) [Concomitant]
     Indication: IRON DEFICIENCY ANAEMIA
     Route: 065

REACTIONS (1)
  - Erectile dysfunction [Recovering/Resolving]

NARRATIVE: CASE EVENT DATE: 20180901
